FAERS Safety Report 25342087 (Version 1)
Quarter: 2025Q2

REPORT INFORMATION
  Report Type: Spontaneous
  Country: US (occurrence: None)
  Receive Date: 20250520
  Receipt Date: 20250520
  Transmission Date: 20250716
  Serious: Yes (Other)
  Sender: FDA-CTU
  Company Number: None

PATIENT
  Age: 53 Year
  Sex: Female

DRUGS (1)
  1. HOMOSALATE\OCTISALATE\OCTOCRYLENE [Suspect]
     Active Substance: HOMOSALATE\OCTISALATE\OCTOCRYLENE
     Indication: Facial cosmetic procedure
     Route: 061
     Dates: start: 20250513, end: 20250520

REACTIONS (1)
  - Rash [None]

NARRATIVE: CASE EVENT DATE: 20250520
